FAERS Safety Report 8277075-5 (Version None)
Quarter: 2012Q2

REPORT INFORMATION
  Report Type: 
  Country: None (occurrence: None)
  Receive Date: 20120412
  Receipt Date: 20120406
  Transmission Date: 20120825
  Serious: Yes (Other)
  Sender: FDA-Public Use
  Company Number: US-ROXANE LABORATORIES, INC.-2012-RO-01005RO

PATIENT

DRUGS (1)
  1. LITHIUM CARBONATE [Suspect]
     Indication: AMYOTROPHIC LATERAL SCLEROSIS
     Dosage: 300 MG

REACTIONS (3)
  - CONFUSIONAL STATE [None]
  - DEHYDRATION [None]
  - PYREXIA [None]
